FAERS Safety Report 4323666-3 (Version None)
Quarter: 2004Q1

REPORT INFORMATION
  Report Type: 
  Country: None (occurrence: None)
  Receive Date: 20040325
  Receipt Date: 20040325
  Transmission Date: 20041129
  Serious: Yes (Hospitalization)
  Sender: FDA-Public Use
  Company Number: None

PATIENT
  Age: 51 Year
  Sex: Female
  Weight: 88.2 kg

DRUGS (12)
  1. TAXOL [Suspect]
     Indication: OVARIAN CANCER
     Dosage: 175 MG/M2 EVERY 3 WE IV
     Route: 042
     Dates: start: 20040303, end: 20040303
  2. CARBOPLATIN [Suspect]
     Indication: OVARIAN CANCER
     Dosage: AUC 6 EVERY 3 WE IV
     Route: 042
     Dates: start: 20040303, end: 20040303
  3. HYDROCHLOROTHIAZIDE [Concomitant]
  4. NEFEDIPINE [Concomitant]
  5. FLONASE [Concomitant]
  6. SINGULAIR [Concomitant]
  7. NEULASTA [Concomitant]
  8. ARANESP [Concomitant]
  9. ANZEMET [Concomitant]
  10. DECADRON [Concomitant]
  11. PEPCID [Concomitant]
  12. BENADRYL [Concomitant]

REACTIONS (1)
  - PNEUMONIA [None]
